FAERS Safety Report 9071663 (Version 1)
Quarter: 2013Q1

REPORT INFORMATION
  Report Type: Report from Study
  Country: US (occurrence: US)
  Receive Date: 20130129
  Receipt Date: 20130129
  Transmission Date: 20140127
  Serious: No
  Sender: FDA-Public Use
  Company Number: US-ABBOTT-12P-163-0922295-00

PATIENT
  Sex: Female
  Weight: 97.16 kg

DRUGS (6)
  1. HUMIRA 40 MG/0.8 ML PEN [Suspect]
     Indication: ARTHRITIS
     Route: 058
     Dates: start: 201103
  2. ATENOLOL [Concomitant]
     Indication: HYPERTENSION
  3. CLONIDINE [Concomitant]
     Indication: HYPERTENSION
  4. PREVACID [Concomitant]
     Indication: DYSPEPSIA
  5. LIDOCAINE [Concomitant]
     Indication: PAIN
     Route: 062
  6. HYZAAR [Concomitant]
     Indication: HYPERTENSION

REACTIONS (2)
  - Sensation of heaviness [Recovering/Resolving]
  - Vascular pain [Recovering/Resolving]
